FAERS Safety Report 8056957-3 (Version None)
Quarter: 2012Q1

REPORT INFORMATION
  Report Type: 
  Country: None (occurrence: None)
  Receive Date: 20120119
  Receipt Date: 20120118
  Transmission Date: 20120608
  Serious: Yes (Death)
  Sender: FDA-Public Use
  Company Number: MX-B.I. PHARMACEUTICALS,INC./RIDGEFIELD-2012-MX-00017MX

PATIENT
  Age: 62 Year
  Sex: Male

DRUGS (1)
  1. DABIGATRAN ETEXILATE [Suspect]
     Indication: PULMONARY EMBOLISM
     Dosage: 300 MG
     Route: 048
     Dates: start: 20111201, end: 20120101

REACTIONS (1)
  - RESPIRATORY FAILURE [None]
